FAERS Safety Report 6921703-0 (Version None)
Quarter: 2010Q3

REPORT INFORMATION
  Report Type: 
  Country: None (occurrence: None)
  Receive Date: 20100812
  Receipt Date: 20100805
  Transmission Date: 20110219
  Serious: Yes (Other)
  Sender: FDA-Public Use
  Company Number: US-MYLANLABS-2010S1013044

PATIENT
  Age: 46 Year
  Sex: Female

DRUGS (7)
  1. LEVETIRACETAM [Suspect]
     Indication: CONVULSION
     Route: 048
     Dates: start: 20090813, end: 20100401
  2. LEVETIRACETAM [Suspect]
     Route: 048
     Dates: start: 20100401
  3. MYSOLINE [Concomitant]
     Indication: CONVULSION
     Dates: start: 19800101
  4. DIAMOX SRC [Concomitant]
     Indication: CONVULSION
     Dosage: TAKEN FOR YEARS
  5. FOLIC ACID [Concomitant]
  6. M.V.I. [Concomitant]
  7. VITAMIN B-12 [Concomitant]

REACTIONS (7)
  - BRAIN INJURY [None]
  - CONVULSION [None]
  - DIZZINESS [None]
  - DYSPNOEA [None]
  - FATIGUE [None]
  - HEART RATE INCREASED [None]
  - INSOMNIA [None]
